FAERS Safety Report 23553114 (Version 1)
Quarter: 2024Q1

REPORT INFORMATION
  Report Type: Spontaneous
  Country: US (occurrence: US)
  Receive Date: 20240222
  Receipt Date: 20240222
  Transmission Date: 20240410
  Serious: No
  Sender: FDA-Public Use
  Company Number: US-BEH-2024168605

PATIENT
  Age: 5 Year

DRUGS (1)
  1. CORIFACT [Suspect]
     Active Substance: FACTOR XIII CONCENTRATE (HUMAN)
     Indication: Factor VIII deficiency
     Dosage: 60 INTERNATIONAL UNIT/KILOGRAM, QMT (EVERY 4 WEEKS)
     Route: 065

REACTIONS (4)
  - Coagulation factor decreased [Unknown]
  - Coagulation factor decreased [Unknown]
  - No adverse event [Unknown]
  - Off label use [Unknown]
